FAERS Safety Report 6612655-1 (Version None)
Quarter: 2010Q1

REPORT INFORMATION
  Report Type: 
  Country: None (occurrence: None)
  Receive Date: 20100303
  Receipt Date: 20100224
  Transmission Date: 20100710
  Serious: Yes (Other)
  Sender: FDA-Public Use
  Company Number: ZA-ROXANE LABORATORIES, INC.-2010-DE-01304GD

PATIENT
  Age: 56 Month
  Sex: Male

DRUGS (5)
  1. CLONIDINE [Suspect]
  2. MORPHINE [Suspect]
     Indication: PAIN
  3. KETAMINE HCL [Suspect]
  4. TILIDINE [Suspect]
  5. MIDAZOLAM HCL [Suspect]

REACTIONS (4)
  - AGITATION [None]
  - DELIRIUM [None]
  - EMOTIONAL DISTRESS [None]
  - PSYCHOMOTOR HYPERACTIVITY [None]
